FAERS Safety Report 19443229 (Version 1)
Quarter: 2021Q2

REPORT INFORMATION
  Report Type: Spontaneous
  Country: IN (occurrence: IN)
  Receive Date: 20210621
  Receipt Date: 20210621
  Transmission Date: 20210717
  Serious: Yes (Death)
  Sender: FDA-Public Use
  Company Number: IN-PFIZER INC-2020458734

PATIENT
  Age: 59 Year
  Sex: Female
  Weight: 56 kg

DRUGS (3)
  1. PANTOCID [MONALAZONE DISODIUM] [Concomitant]
     Dosage: 40 MG, DAILY (1 TABLET BEFORE BREAKFAST DAILY)
  2. DACOPLICE [Suspect]
     Active Substance: DACOMITINIB
     Dosage: 30 MG, 1X/DAY (30 MG ONCE DAILY)
     Route: 048
     Dates: start: 20201118
  3. WYSOLONE [Concomitant]
     Active Substance: PREDNISOLONE
     Dosage: 10 MG, DAILY, (10 MG AFTER FOOD ONE TABLET DAILY)

REACTIONS (2)
  - Cough [Unknown]
  - Death [Fatal]
